FAERS Safety Report 12843496 (Version 1)
Quarter: 2016Q4

REPORT INFORMATION
  Report Type: Spontaneous
  Country: US (occurrence: US)
  Receive Date: 20161013
  Receipt Date: 20161013
  Transmission Date: 20170207
  Serious: Yes (Hospitalization, Disabling, Other)
  Sender: FDA-Public Use
  Company Number: None

PATIENT
  Age: 75 Year
  Sex: Male
  Weight: 83.46 kg

DRUGS (9)
  1. VITAMIN A [Concomitant]
     Active Substance: VITAMIN A
  2. VITAMIN B [Concomitant]
     Active Substance: VITAMIN B
  3. MAGNESIUM [Concomitant]
     Active Substance: MAGNESIUM
  4. CIPROFLOXACIN HYDROCHLORIDE (ANTI-BIOTIC) [Suspect]
     Active Substance: CIPROFLOXACIN HYDROCHLORIDE
     Indication: PROSTATE INFECTION
     Route: 048
     Dates: start: 20160613, end: 20160718
  5. GLUCOSAMINE [Concomitant]
     Active Substance: GLUCOSAMINE
  6. VITAMIN C [Concomitant]
     Active Substance: ASCORBIC ACID
  7. TAMSULOSIN [Concomitant]
     Active Substance: TAMSULOSIN
  8. VITAMIN D [Concomitant]
     Active Substance: CHOLECALCIFEROL
  9. CALCIUM [Concomitant]
     Active Substance: CALCIUM

REACTIONS (10)
  - Quality of life decreased [None]
  - Asthenia [None]
  - Arthropathy [None]
  - Tendon rupture [None]
  - Muscle rupture [None]
  - Arthralgia [None]
  - Nerve injury [None]
  - Abasia [None]
  - Musculoskeletal pain [None]
  - Movement disorder [None]

NARRATIVE: CASE EVENT DATE: 20160613
